FAERS Safety Report 8514581-X (Version None)
Quarter: 2012Q3

REPORT INFORMATION
  Report Type: 
  Country: None (occurrence: None)
  Receive Date: 20120717
  Receipt Date: 20120713
  Transmission Date: 20120928
  Serious: Yes (Other)
  Sender: FDA-Public Use
  Company Number: JP-JNJFOC-20120401908

PATIENT
  Sex: Female
  Weight: 51 kg

DRUGS (10)
  1. CANDESARTAN CILEXETIL [Concomitant]
     Indication: HYPERTENSION
     Route: 048
  2. LIVALO [Concomitant]
     Indication: HYPERLIPIDAEMIA
     Route: 048
     Dates: start: 20100621
  3. BETAMETHASONE [Concomitant]
     Indication: COLITIS ULCERATIVE
     Route: 054
     Dates: start: 20120214
  4. RABEPRAZOLE SODIUM [Concomitant]
     Indication: GASTROOESOPHAGEAL REFLUX DISEASE
     Route: 048
  5. PREDNISOLONE [Concomitant]
     Indication: COLITIS ULCERATIVE
     Route: 048
     Dates: start: 20100110
  6. ASACOL [Concomitant]
     Indication: COLITIS ULCERATIVE
     Route: 048
     Dates: start: 20110118
  7. CEFAZOLIN SODIUM [Concomitant]
     Indication: COLITIS ULCERATIVE
     Route: 048
  8. REMICADE [Suspect]
     Dosage: 5MG/KG
     Route: 042
     Dates: start: 20111104
  9. IMURAN [Concomitant]
     Indication: COLITIS ULCERATIVE
     Route: 048
     Dates: start: 20120313
  10. REMICADE [Suspect]
     Indication: COLITIS ULCERATIVE
     Dosage: 4TH DOSE; 5MG/KG
     Route: 042
     Dates: start: 20120214

REACTIONS (2)
  - TENSION HEADACHE [None]
  - LEUKOENCEPHALOPATHY [None]
